FAERS Safety Report 8951567 (Version 1)
Quarter: 2012Q4

REPORT INFORMATION
  Report Type: 
  Country: GB (occurrence: GB)
  Receive Date: 20121204
  Receipt Date: 20121204
  Transmission Date: 20130627
  Serious: Yes (Other)
  Sender: FDA-Public Use
  Company Number: GB-B.I. PHARMACEUTICALS,INC./RIDGEFIELD-2012-BI-02178YA

PATIENT
  Age: 59 Year
  Sex: Male

DRUGS (10)
  1. TAMSULOSINA [Suspect]
  2. FLUCLOXACILLIN [Suspect]
     Indication: CELLULITIS
     Dosage: 1 g
     Route: 042
     Dates: start: 20120926, end: 20120928
  3. BECLOMETHASONE DIPROPIONATE (BECLOMETASONE DIPROPIONATE) [Concomitant]
  4. CLINDAMYCIN (CLINDAMYCIN) [Concomitant]
  5. CODEINE (CODEINE) [Concomitant]
  6. DICLOFENAC (DICLOFENAC) [Concomitant]
  7. LANSOPRAZOLE (LANSOPRAZOLE) [Concomitant]
  8. MACROGOL (MACROGOL) [Concomitant]
  9. MORPHINE (MORPHINE) [Concomitant]
  10. PARACETAMOL (PARACETAMOL) [Concomitant]

REACTIONS (2)
  - Liver function test abnormal [Not Recovered/Not Resolved]
  - Drug-induced liver injury [Not Recovered/Not Resolved]
